FAERS Safety Report 9995572 (Version 1)
Quarter: 2014Q1

REPORT INFORMATION
  Report Type: Spontaneous
  Country: US (occurrence: None)
  Receive Date: 20140304
  Receipt Date: 20140304
  Transmission Date: 20141002
  Serious: Yes (Hospitalization, Other)
  Sender: FDA-Public Use
  Company Number: RB-7909-2007

PATIENT
  Sex: Male

DRUGS (3)
  1. SUBOXONE 8 MG [Suspect]
     Indication: DRUG DEPENDENCE
     Route: 064
     Dates: start: 20061101, end: 20061201
  2. SUBUTEX [Suspect]
     Indication: DRUG DEPENDENCE
     Route: 064
     Dates: start: 20061202, end: 20070104
  3. PRENATAL VITAMINS [Concomitant]

REACTIONS (2)
  - Foetal exposure during pregnancy [None]
  - Irritability [None]
